FAERS Safety Report 6935681-1 (Version None)
Quarter: 2010Q3

REPORT INFORMATION
  Report Type: 
  Country: None (occurrence: None)
  Receive Date: 20100823
  Receipt Date: 20100813
  Transmission Date: 20110219
  Serious: Yes (Other)
  Sender: FDA-Public Use
  Company Number: AU-JNJFOC-20100707172

PATIENT
  Age: 40 Year
  Sex: Female

DRUGS (6)
  1. DITROPAN [Suspect]
     Indication: INCONTINENCE
     Dosage: 1 UNIT; AT BEDTIME
     Route: 048
  2. CLOPIDOGREL [Concomitant]
     Indication: PRODUCT USED FOR UNKNOWN INDICATION
     Route: 065
  3. PERINDOPRIL ERBUMINE [Concomitant]
     Indication: PRODUCT USED FOR UNKNOWN INDICATION
     Route: 065
  4. CRESTOR [Concomitant]
     Route: 065
  5. MIRTAZAPINE [Concomitant]
     Route: 065
  6. XANAX [Concomitant]
     Route: 065

REACTIONS (1)
  - ANGIOEDEMA [None]
